FAERS Safety Report 4791463-0 (Version None)
Quarter: 2005Q4

REPORT INFORMATION
  Report Type: 
  Country: None (occurrence: None)
  Receive Date: 20051007
  Receipt Date: 20040812
  Transmission Date: 20060501
  Serious: No
  Sender: FDA-Public Use
  Company Number: US-BRISTOL-MYERS SQUIBB COMPANY-12671434

PATIENT
  Sex: Female

DRUGS (4)
  1. AVAPRO [Suspect]
     Indication: HYPERTENSION
     Route: 048
  2. HYDROCHLOROTHIAZIDE [Concomitant]
  3. NAPROSYN [Concomitant]
  4. MULTI-VITAMIN [Concomitant]

REACTIONS (1)
  - ORGASM ABNORMAL [None]
